FAERS Safety Report 7841477-9 (Version None)
Quarter: 2011Q4

REPORT INFORMATION
  Report Type: 
  Country: None (occurrence: None)
  Receive Date: 20111025
  Receipt Date: 20111018
  Transmission Date: 20120403
  Serious: Yes (Hospitalization, Other)
  Sender: FDA-Public Use
  Company Number: US-JNJFOC-20110809712

PATIENT
  Sex: Female
  Weight: 38.1 kg

DRUGS (2)
  1. DURAGESIC-100 [Suspect]
     Indication: PAIN
     Route: 062
     Dates: start: 19940101, end: 20070101
  2. FENTANYL-100 [Suspect]
     Indication: PAIN
     Route: 062
     Dates: start: 20070101

REACTIONS (12)
  - FALL [None]
  - GASTRIC DISORDER [None]
  - BODY HEIGHT DECREASED [None]
  - OSTEOPOROSIS [None]
  - CERVICAL VERTEBRAL FRACTURE [None]
  - SPINAL FRACTURE [None]
  - MYOCARDIAL INFARCTION [None]
  - WOUND INFECTION [None]
  - UPPER LIMB FRACTURE [None]
  - GASTROINTESTINAL OBSTRUCTION [None]
  - SENSORY LOSS [None]
  - PRODUCT QUALITY ISSUE [None]
